FAERS Safety Report 5936213-7 (Version None)
Quarter: 2008Q4

REPORT INFORMATION
  Report Type: 
  Country: None (occurrence: None)
  Receive Date: 20081030
  Receipt Date: 20071102
  Transmission Date: 20090506
  Serious: No
  Sender: FDA-Public Use
  Company Number: A0496045A

PATIENT
  Age: 37 Year
  Sex: Male

DRUGS (3)
  1. SEREVENT [Suspect]
     Indication: ASTHMA
     Route: 055
  2. FORADIL [Suspect]
  3. SEREVENT [Concomitant]
     Route: 055

REACTIONS (1)
  - ASTHMA [None]
